FAERS Safety Report 9365883 (Version 1)
Quarter: 2013Q2

REPORT INFORMATION
  Report Type: Spontaneous
  Country: CA (occurrence: CA)
  Receive Date: 20130625
  Receipt Date: 20130625
  Transmission Date: 20140414
  Serious: Yes (Life-Threatening, Hospitalization)
  Sender: FDA-Public Use
  Company Number: CA-B.I. PHARMACEUTICALS,INC./RIDGEFIELD-2013-CN-01118CN

PATIENT
  Age: 64 Year
  Sex: Male
  Weight: 64 kg

DRUGS (10)
  1. PRADAX [Suspect]
     Dosage: 220 MG
     Route: 048
  2. ASA [Suspect]
     Dosage: 81 MG
     Route: 048
  3. TEVA-AMIODARONE [Suspect]
     Dosage: 600 MG
     Route: 048
  4. ADVAIR DISKUS [Concomitant]
  5. ATROVENT [Concomitant]
  6. COVERSYL [Concomitant]
  7. METOPROLOL [Concomitant]
  8. ROSUVASTATIN [Concomitant]
  9. TECTA [Concomitant]
  10. VENTOLIN [Concomitant]

REACTIONS (4)
  - Respiratory failure [Recovered/Resolved]
  - Pulmonary vasculitis [Recovered/Resolved]
  - Haemoglobin decreased [Recovered/Resolved]
  - Haemoptysis [Recovered/Resolved]
